FAERS Safety Report 21550627 (Version 1)
Quarter: 2022Q4

REPORT INFORMATION
  Report Type: Spontaneous
  Country: US (occurrence: None)
  Receive Date: 20221103
  Receipt Date: 20221103
  Transmission Date: 20230113
  Serious: Yes (Life-Threatening, Hospitalization)
  Sender: FDA-Public Use
  Company Number: None

PATIENT
  Age: 39 Year
  Sex: Male
  Weight: 127.9 kg

DRUGS (1)
  1. NIVESTYM [Suspect]
     Active Substance: FILGRASTIM-AAFI
     Indication: Neutropenia
     Dosage: FREQUENCY : DAILY;?
     Route: 058
     Dates: start: 20221028, end: 20221031

REACTIONS (3)
  - Hypoxia [None]
  - Febrile neutropenia [None]
  - Pneumonitis [None]

NARRATIVE: CASE EVENT DATE: 20221031
